FAERS Safety Report 5413911-5 (Version None)
Quarter: 2007Q3

REPORT INFORMATION
  Report Type: 
  Country: None (occurrence: None)
  Receive Date: 20070810
  Receipt Date: 20070726
  Transmission Date: 20080115
  Serious: Yes (Hospitalization)
  Sender: FDA-Public Use
  Company Number: 001#2#2007-00503

PATIENT
  Sex: Female

DRUGS (1)
  1. NEUPRO-PATCH-DOSE-UNKNOWN (ROTIGOTINE) [Suspect]
     Dosage: 12 MG/24H (12 MG/24H 1 IN 1 DAY (S)) TRANSDERMAL
     Route: 062

REACTIONS (2)
  - LOSS OF CONSCIOUSNESS [None]
  - PYREXIA [None]
